FAERS Safety Report 13053255 (Version 8)
Quarter: 2017Q2

REPORT INFORMATION
  Report Type: Report from Study
  Country: US (occurrence: US)
  Receive Date: 20161222
  Receipt Date: 20170426
  Transmission Date: 20170830
  Serious: Yes (Hospitalization, Disabling, Other)
  Sender: FDA-Public Use
  Company Number: US-009507513-1612USA006380

PATIENT
  Age: 75 Year
  Sex: Female

DRUGS (7)
  1. SOTALOL. [Concomitant]
     Active Substance: SOTALOL
     Dosage: UNK
  2. HYDROCHLOROTHIAZIDE. [Concomitant]
     Active Substance: HYDROCHLOROTHIAZIDE
     Dosage: UNK
  3. PEMBROLIZUMAB. [Suspect]
     Active Substance: PEMBROLIZUMAB
     Indication: MALIGNANT MELANOMA
     Dosage: UNK, EVERY 3 WEEKS
     Route: 042
     Dates: start: 20161021, end: 20170406
  4. DILTIAZEM. [Concomitant]
     Active Substance: DILTIAZEM
     Dosage: UNK
  5. PEMBROLIZUMAB. [Suspect]
     Active Substance: PEMBROLIZUMAB
     Dosage: UNK
     Dates: start: 20170406
  6. COZAAR [Concomitant]
     Active Substance: LOSARTAN POTASSIUM
     Dosage: UNK
     Route: 048
  7. XARELTO [Suspect]
     Active Substance: RIVAROXABAN
     Dosage: UNK

REACTIONS (23)
  - Muscle rupture [Recovering/Resolving]
  - Abdominal discomfort [Unknown]
  - Depressed mood [Unknown]
  - Asthenia [Unknown]
  - Malignant neoplasm progression [Unknown]
  - Aphonia [Recovered/Resolved]
  - Back pain [Not Recovered/Not Resolved]
  - Arthralgia [Unknown]
  - Bronchitis viral [Not Recovered/Not Resolved]
  - Gait disturbance [Unknown]
  - Skin mass [Unknown]
  - Fatigue [Not Recovered/Not Resolved]
  - Haematoma [Unknown]
  - Sinusitis [Recovered/Resolved]
  - Neoplasm [Unknown]
  - Headache [Unknown]
  - Pain in extremity [Recovering/Resolving]
  - Nausea [Unknown]
  - Groin pain [Not Recovered/Not Resolved]
  - Mood swings [Unknown]
  - Muscular weakness [Unknown]
  - Paraesthesia [Unknown]
  - Arthritis [Unknown]

NARRATIVE: CASE EVENT DATE: 2016
